FAERS Safety Report 4732624-6 (Version None)
Quarter: 2005Q3

REPORT INFORMATION
  Report Type: 
  Country: None (occurrence: None)
  Receive Date: 20050801
  Receipt Date: 20050720
  Transmission Date: 20060218
  Serious: Yes (Hospitalization, Other)
  Sender: FDA-Public Use
  Company Number: 2005067788

PATIENT
  Age: 23 Year
  Sex: Female
  Weight: 108.8633 kg

DRUGS (6)
  1. DEPO-PROVERA [Suspect]
     Indication: CONTRACEPTION
     Dosage: SEE IMAGE
     Dates: start: 20050207, end: 20050207
  2. DEPO-PROVERA [Suspect]
     Indication: CONTRACEPTION
     Dosage: SEE IMAGE
     Dates: start: 20050401, end: 20050401
  3. COUMADIN [Concomitant]
  4. CHROMAGEN (ASCORBIC ACID) CYANOCOBALAMIN, FERROUS FUMARATE, STOMACH DE [Concomitant]
  5. CHOLESTYRAMINE RESIN (COLESTYRAMINE) [Concomitant]
  6. PREVACID [Concomitant]

REACTIONS (4)
  - ANTIPHOSPHOLIPID ANTIBODIES POSITIVE [None]
  - HYPERCOAGULATION [None]
  - PNEUMONIA [None]
  - PULMONARY EMBOLISM [None]
